FAERS Safety Report 15159211 (Version 14)
Quarter: 2021Q1

REPORT INFORMATION
  Report Type: Report from Study
  Country: GB (occurrence: GB)
  Receive Date: 20180718
  Receipt Date: 20210326
  Transmission Date: 20210419
  Serious: Yes (Hospitalization, Other)
  Sender: FDA-Public Use
  Company Number: GB-PFIZER INC-2018281098

PATIENT
  Age: 47 Year
  Sex: Female

DRUGS (25)
  1. DOCETAXEL. [Suspect]
     Active Substance: DOCETAXEL
     Indication: BREAST CANCER METASTATIC
     Dosage: 140 MG, EVERY 3 WEEKS NUMBER OF CYCLE 6
     Route: 042
     Dates: start: 20150424, end: 20150605
  2. PACLITAXEL. [Suspect]
     Active Substance: PACLITAXEL
     Dosage: 162 MG, WEEKLY
     Route: 042
     Dates: start: 20180307, end: 20180413
  3. DENOSUMAB [Concomitant]
     Active Substance: DENOSUMAB
     Dosage: 120 MG, (EVERY 6 WEEKS)
     Route: 058
     Dates: start: 20160518, end: 20180907
  4. PACLITAXEL. [Suspect]
     Active Substance: PACLITAXEL
     Dosage: 60 MG
     Dates: start: 20180706, end: 20180817
  5. TRASTUZUMAB. [Suspect]
     Active Substance: TRASTUZUMAB
     Dosage: 441 MG, EVERY 3 WEEKS
     Route: 042
     Dates: start: 20150808, end: 20160117
  6. ERIBULIN MESYLATE [Suspect]
     Active Substance: ERIBULIN MESYLATE
     Dosage: 2.4 MG
     Route: 042
     Dates: start: 20171011, end: 20180125
  7. PACLITAXEL. [Suspect]
     Active Substance: PACLITAXEL
     Dosage: 120 MG, WEEKLY
     Dates: start: 20180504, end: 20180618
  8. TRASTUZUMAB. [Suspect]
     Active Substance: TRASTUZUMAB
     Dosage: 483 MG, EVERY 3 WEEKS (MAINTAINANCE DOSE)
     Route: 042
     Dates: start: 20150515, end: 20150605
  9. TRASTUZUMAB EMTANSINE [Suspect]
     Active Substance: ADO-TRASTUZUMAB EMTANSINE
     Dosage: 180 MG, EVERY 3 WEEKS
     Route: 042
     Dates: start: 20170208, end: 20170705
  10. BEROCCA /00302401/ [Concomitant]
     Dosage: 1 DF, UNK
     Route: 048
  11. DOCETAXEL. [Suspect]
     Active Substance: DOCETAXEL
     Dosage: 140 MG, EVERY 3 WEEKS
     Route: 042
     Dates: start: 20150605, end: 20150605
  12. DOCETAXEL. [Suspect]
     Active Substance: DOCETAXEL
     Dosage: UNK
     Route: 042
  13. TRASTUZUMAB EMTANSINE [Suspect]
     Active Substance: ADO-TRASTUZUMAB EMTANSINE
     Indication: BREAST CANCER METASTATIC
     Dosage: 260 MG, EVERY 3 WEEKS
     Route: 042
     Dates: start: 20160404, end: 20161102
  14. TRASTUZUMAB EMTANSINE [Suspect]
     Active Substance: ADO-TRASTUZUMAB EMTANSINE
     Dosage: 140 MG, EVERY 3 WEEKS
     Route: 042
     Dates: start: 20170208
  15. ERIBULIN MESYLATE [Suspect]
     Active Substance: ERIBULIN MESYLATE
     Dosage: 2.88 MG, WEEKLY
     Route: 042
     Dates: start: 20170823, end: 20170913
  16. TRASTUZUMAB. [Suspect]
     Active Substance: TRASTUZUMAB
     Indication: BREAST CANCER METASTATIC
     Dosage: 619.5 MG, UNK (LOADING DOSE)
     Route: 042
     Dates: start: 20150423, end: 20150423
  17. VINORELBINE [Suspect]
     Active Substance: VINORELBINE TARTRATE
     Dosage: UNK
  18. DENOSUMAB [Concomitant]
     Active Substance: DENOSUMAB
     Dosage: 120 MG, EVERY 3 WEEKS
     Route: 058
     Dates: start: 20150515
  19. ADCAL D3 [Concomitant]
     Active Substance: CALCIUM CARBONATE\CHOLECALCIFEROL
     Dosage: 1 DF, 1X/DAY
     Route: 048
     Dates: start: 20150612
  20. DOCETAXEL. [Suspect]
     Active Substance: DOCETAXEL
     Dosage: 100 MG, EVERY 3 WEEKS
     Route: 042
     Dates: start: 20150710, end: 20150826
  21. DOCETAXEL. [Suspect]
     Active Substance: DOCETAXEL
     Dosage: 150 MG, EVERY 3 WEEKS
     Route: 042
     Dates: start: 20150515, end: 20150515
  22. TRASTUZUMAB. [Suspect]
     Active Substance: TRASTUZUMAB
     Dosage: 630 MG, EVERY 3 WEEKS
     Route: 042
     Dates: start: 20150710, end: 20150710
  23. PERTUZUMAB. [Suspect]
     Active Substance: PERTUZUMAB
     Indication: BREAST CANCER METASTATIC
     Dosage: 840 MG, LOADING DOSE
     Route: 042
     Dates: start: 20150423, end: 20150423
  24. PERTUZUMAB. [Suspect]
     Active Substance: PERTUZUMAB
     Dosage: 420 MG, EVERY 3 WEEKS, MAINTAINANCE DOSE
     Route: 042
     Dates: start: 20150515, end: 20160309
  25. AMITRIPTYLINE [Concomitant]
     Active Substance: AMITRIPTYLINE
     Dosage: 30 MG
     Dates: start: 201410

REACTIONS (27)
  - Fatigue [Recovering/Resolving]
  - Dyspnoea [Recovering/Resolving]
  - Nasopharyngitis [Recovered/Resolved]
  - Palmar-plantar erythrodysaesthesia syndrome [Unknown]
  - Fatigue [Recovered/Resolved]
  - Diarrhoea [Recovered/Resolved]
  - Peripheral sensory neuropathy [Not Recovered/Not Resolved]
  - Constipation [Recovered/Resolved]
  - Pain in extremity [Recovered/Resolved]
  - Pain [Recovered/Resolved]
  - Back pain [Recovered/Resolved]
  - Pneumonia [Recovered/Resolved]
  - Stomatitis [Not Recovered/Not Resolved]
  - Gastrooesophageal reflux disease [Recovered/Resolved]
  - Cellulitis [Recovered/Resolved]
  - Alopecia [Recovered/Resolved]
  - Nausea [Unknown]
  - Headache [Recovered/Resolved]
  - Cellulitis [Recovered/Resolved]
  - Lower respiratory tract infection [Recovered/Resolved]
  - Stomatitis [Recovered/Resolved]
  - Decreased appetite [Recovering/Resolving]
  - Neuropathy peripheral [Recovering/Resolving]
  - Vascular device infection [Recovered/Resolved]
  - Fungal infection [Recovered/Resolved]
  - Pyrexia [Recovered/Resolved]
  - Palmar-plantar erythrodysaesthesia syndrome [Recovered/Resolved]

NARRATIVE: CASE EVENT DATE: 201506
